APPROVED DRUG PRODUCT: CLOBETASOL PROPIONATE
Active Ingredient: CLOBETASOL PROPIONATE
Strength: 0.05%
Dosage Form/Route: SOLUTION;TOPICAL
Application: A075363 | Product #001
Applicant: SUN PHARMA CANADA INC
Approved: Dec 29, 2000 | RLD: No | RS: No | Type: DISCN